FAERS Safety Report 4526011-3 (Version None)
Quarter: 2004Q4

REPORT INFORMATION
  Report Type: 
  Country: None (occurrence: None)
  Receive Date: 20041213
  Receipt Date: 20041213
  Transmission Date: 20050328
  Serious: Yes (Other)
  Sender: FDA-Public Use
  Company Number: None

PATIENT
  Sex: Female
  Weight: 65.7716 kg

DRUGS (3)
  1. INDAPAMIDE [Suspect]
     Indication: HYPERTENSION
     Dosage: ONE  DAILY  ORAL
     Route: 048
     Dates: start: 20041118, end: 20041205
  2. FOSIMAX [Concomitant]
  3. FEMHRT [Concomitant]

REACTIONS (4)
  - GINGIVITIS [None]
  - RASH [None]
  - STOMATITIS [None]
  - SWELLING FACE [None]
